FAERS Safety Report 9348337 (Version 2)
Quarter: 2013Q3

REPORT INFORMATION
  Report Type: Spontaneous
  Country: US (occurrence: US)
  Receive Date: 20130614
  Receipt Date: 20130729
  Transmission Date: 20140515
  Serious: Yes (Disabling)
  Sender: FDA-Public Use
  Company Number: US-PFIZER INC-2013163465

PATIENT
  Sex: Female
  Weight: 112 kg

DRUGS (6)
  1. NEURONTIN [Suspect]
     Indication: DIABETIC NEUROPATHY
     Dosage: 800 MG, 4X/DAY
  2. NEURONTIN [Suspect]
     Indication: NEURALGIA
  3. NEURONTIN [Suspect]
     Indication: FIBROMYALGIA
  4. LYRICA [Suspect]
     Indication: DIABETIC NEUROPATHY
     Dosage: UNK
  5. LYRICA [Suspect]
     Indication: FIBROMYALGIA
  6. HUMALOG MIX 75/25 [Concomitant]
     Indication: DIABETES MELLITUS
     Dosage: 25 IU, 2X/DAY

REACTIONS (2)
  - Limb discomfort [Unknown]
  - Drug ineffective [Unknown]
